FAERS Safety Report 9326312 (Version 1)
Quarter: 2013Q2

REPORT INFORMATION
  Report Type: Spontaneous
  Country: US (occurrence: US)
  Receive Date: 20130604
  Receipt Date: 20130604
  Transmission Date: 20140414
  Serious: No
  Sender: FDA-Public Use
  Company Number: US-009507513-1305USA015682

PATIENT
  Sex: Male

DRUGS (1)
  1. NASONEX [Suspect]
     Indication: RHINITIS SEASONAL
     Dosage: 1 DF, QD, ONE SPRAY IN EACH NOSTRIL ONCE DAILY
     Route: 045
     Dates: start: 2012, end: 2012

REACTIONS (1)
  - Epistaxis [Unknown]
